FAERS Safety Report 10658385 (Version 4)
Quarter: 2015Q2

REPORT INFORMATION
  Report Type: Report from Study
  Country: US (occurrence: US)
  Receive Date: 20141217
  Receipt Date: 20150423
  Transmission Date: 20150821
  Serious: Yes (Hospitalization)
  Sender: FDA-Public Use
  Company Number: US-ACTELION-A-US2014-109861

PATIENT
  Age: 67 Year
  Sex: Male

DRUGS (3)
  1. VENTAVIS [Suspect]
     Active Substance: ILOPROST
     Indication: PULMONARY HYPERTENSION
     Dosage: 5 MCG, 4-6 X /DAY
     Route: 055
     Dates: start: 20080209
  2. REVATIO [Concomitant]
     Active Substance: SILDENAFIL CITRATE
  3. LETAIRIS [Concomitant]
     Active Substance: AMBRISENTAN

REACTIONS (7)
  - Gastrointestinal haemorrhage [Unknown]
  - Oesophageal varices haemorrhage [Unknown]
  - Syncope [Unknown]
  - Dizziness [Unknown]
  - Haemoptysis [Unknown]
  - Drug dose omission [Unknown]
  - Dyspnoea [Unknown]
